FAERS Safety Report 4635761-X (Version None)
Quarter: 2005Q2

REPORT INFORMATION
  Report Type: 
  Country: None (occurrence: None)
  Receive Date: 20050413
  Receipt Date: 20050331
  Transmission Date: 20051028
  Serious: Yes (Other)
  Sender: FDA-Public Use
  Company Number: 2005-04-0028

PATIENT
  Sex: Male

DRUGS (1)
  1. CLARITIN REDITABS [Suspect]
     Indication: RHINITIS
     Dosage: 10 MG ORAL
     Route: 048
     Dates: end: 20050301

REACTIONS (1)
  - EPILEPSY [None]
